FAERS Safety Report 11534983 (Version 1)
Quarter: 2015Q3

REPORT INFORMATION
  Report Type: Spontaneous
  Country: US (occurrence: US)
  Receive Date: 20150903
  Receipt Date: 20150903
  Transmission Date: 20151125
  Serious: No
  Sender: FDA-Public Use
  Company Number: US-ELI_LILLY_AND_COMPANY-US201102004386

PATIENT
  Sex: Female

DRUGS (10)
  1. HUMALOG MIX75/25 [Suspect]
     Active Substance: INSULIN LISPRO
     Indication: DIABETES MELLITUS
     Dosage: 30 U, EACH MORNING
     Dates: start: 20110201, end: 201102
  2. SILYBUM MARIANUM [Concomitant]
  3. HUMALOG MIX75/25 [Suspect]
     Active Substance: INSULIN LISPRO
     Dosage: 20 U, EACH MORNING
     Dates: start: 201102
  4. HUMALOG MIX75/25 [Suspect]
     Active Substance: INSULIN LISPRO
     Dosage: 18 U, EACH EVENING
     Dates: start: 201102
  5. METFORMIN [Concomitant]
     Active Substance: METFORMIN HYDROCHLORIDE
     Dosage: 2 D/F, 2/D
  6. VITAMIN C [Concomitant]
     Active Substance: ASCORBIC ACID
  7. HUMALOG MIX75/25 [Suspect]
     Active Substance: INSULIN LISPRO
     Dosage: 20 U, EACH EVENING
     Dates: start: 20110201, end: 201102
  8. LISINOPRIL. [Concomitant]
     Active Substance: LISINOPRIL
  9. VITAMIN B [Concomitant]
     Active Substance: VITAMIN B
  10. HYDROCODONE [Concomitant]
     Active Substance: HYDROCODONE
     Dosage: UNK, AS NEEDED

REACTIONS (8)
  - Pancreatic disorder [Not Recovered/Not Resolved]
  - Urine odour abnormal [Unknown]
  - Feeling abnormal [Unknown]
  - Renal pain [Not Recovered/Not Resolved]
  - Nausea [Unknown]
  - Blood glucose decreased [Unknown]
  - Dizziness [Unknown]
  - Hyperhidrosis [Unknown]

NARRATIVE: CASE EVENT DATE: 201102
